FAERS Safety Report 7137993-8 (Version None)
Quarter: 2010Q4

REPORT INFORMATION
  Report Type: 
  Country: None (occurrence: None)
  Receive Date: 20101118
  Receipt Date: 20101105
  Transmission Date: 20110411
  Serious: Yes (Death, Life-Threatening, Hospitalization, Other)
  Sender: FDA-Public Use
  Company Number: FRP10000743

PATIENT
  Age: 78 Year
  Sex: Female

DRUGS (6)
  1. ACTONEL [Suspect]
     Indication: OSTEOPOROSIS PROPHYLAXIS
     Dosage: 5 MG, 1 /DAY, ORAL
     Route: 048
     Dates: start: 20030701, end: 20070801
  2. PREDNISONE TAB [Concomitant]
  3. PROTELOS /01556702/ (STRONTIUM RANELATE) [Concomitant]
  4. MONOTILDIEM /00489701/ (DILTIAZEM) [Concomitant]
  5. LEVOTHYROXINE SODIUM [Concomitant]
  6. NEXIUM [Concomitant]

REACTIONS (11)
  - COMPLICATION OF DEVICE REMOVAL [None]
  - DEVICE DISLOCATION [None]
  - GASTRIC CANCER [None]
  - GASTROINTESTINAL NECROSIS [None]
  - KNEE ARTHROPLASTY [None]
  - OESOPHAGEAL CARCINOMA [None]
  - OESOPHAGEAL MASS [None]
  - OESOPHAGEAL STENOSIS [None]
  - OESOPHAGEAL ULCER [None]
  - OSTEOTOMY [None]
  - PROSTHESIS IMPLANTATION [None]
